FAERS Safety Report 15340819 (Version 17)
Quarter: 2021Q4

REPORT INFORMATION
  Report Type: Spontaneous
  Country: US (occurrence: US)
  Receive Date: 20180831
  Receipt Date: 20211110
  Transmission Date: 20220304
  Serious: Yes (Disabling, Other)
  Sender: FDA-Public Use
  Company Number: US-SA-2018SA239827

PATIENT
  Age: 65 Year
  Sex: Male

DRUGS (3)
  1. DUPIXENT [Suspect]
     Active Substance: DUPILUMAB
     Indication: Dermatitis atopic
     Dosage: 300 MG, QOW
     Route: 058
     Dates: start: 201808
  2. DUPIXENT [Suspect]
     Active Substance: DUPILUMAB
     Dosage: 600 MG, 1X
     Route: 058
     Dates: start: 201910, end: 201910
  3. DUPIXENT [Suspect]
     Active Substance: DUPILUMAB
     Dosage: 300 MG, QOW
     Route: 058
     Dates: start: 201910

REACTIONS (17)
  - Blindness [Unknown]
  - Vision blurred [Unknown]
  - Visual impairment [Unknown]
  - Fatigue [Unknown]
  - Ocular hyperaemia [Unknown]
  - Eye pain [Unknown]
  - Nasopharyngitis [Unknown]
  - Eye swelling [Unknown]
  - Skin hyperpigmentation [Unknown]
  - Melanoderma [Unknown]
  - Dermatitis atopic [Unknown]
  - Rash [Unknown]
  - Dry eye [Unknown]
  - Injection site reaction [Unknown]
  - Blepharitis [Unknown]
  - Eye pruritus [Unknown]
  - Product dose omission in error [Unknown]

NARRATIVE: CASE EVENT DATE: 20180101
